FAERS Safety Report 8232666-2 (Version None)
Quarter: 2012Q1

REPORT INFORMATION
  Report Type: 
  Country: None (occurrence: None)
  Receive Date: 20120323
  Receipt Date: 20120322
  Transmission Date: 20120608
  Serious: Yes (Hospitalization, Other)
  Sender: FDA-Public Use
  Company Number: JP-PFIZER INC-2011307221

PATIENT
  Age: 86 Year
  Sex: Male

DRUGS (9)
  1. GASMOTIN [Concomitant]
     Dosage: UNK
  2. SERENAL [Concomitant]
     Dosage: 30 MG DAILY
     Route: 048
  3. FAMOTIDINE [Suspect]
     Dosage: 10 MG DAILY
     Route: 048
  4. METHYCOBAL [Concomitant]
     Dosage: UNK
  5. MAGNESIUM HYDROXIDE TAB [Concomitant]
     Dosage: UNK
  6. FAMOTIDINE [Concomitant]
     Dosage: 60 MG DAILY
     Route: 048
  7. CANDESARTAN CILEXETIL [Suspect]
     Indication: HYPERTENSION
     Dosage: 8 MG DAILY
     Route: 048
  8. LYRICA [Suspect]
     Indication: POST HERPETIC NEURALGIA
     Dosage: 75 MG/DAY
     Route: 048
     Dates: start: 20100101, end: 20111201
  9. BENZBROMARONE [Concomitant]
     Dosage: 150 MG DAILY
     Route: 048

REACTIONS (2)
  - RHABDOMYOLYSIS [None]
  - MUSCLE DISORDER [None]
